FAERS Safety Report 17536047 (Version 3)
Quarter: 2020Q3

REPORT INFORMATION
  Report Type: Report from Study
  Country: US (occurrence: US)
  Receive Date: 20200313
  Receipt Date: 20200707
  Transmission Date: 20201102
  Serious: Yes (Other)
  Sender: FDA-Public Use
  Company Number: NVSC2020US066548

PATIENT

DRUGS (3)
  1. KYMRIAH [Suspect]
     Active Substance: TISAGENLECLEUCEL
     Indication: ACUTE LYMPHOCYTIC LEUKAEMIA
     Dosage: UNK, ONCE/SINGLE
     Route: 065
     Dates: start: 2019
  2. CYCLOPHOSPHAMIDE. [Concomitant]
     Active Substance: CYCLOPHOSPHAMIDE
     Indication: CHEMOTHERAPY
     Dosage: UNK
     Route: 065
  3. FLUDARABINE [Concomitant]
     Active Substance: FLUDARABINE PHOSPHATE
     Indication: CHEMOTHERAPY
     Dosage: UNK
     Route: 065

REACTIONS (18)
  - Cytokine release syndrome [Recovered/Resolved]
  - Central nervous system leukaemia [Unknown]
  - Acute lymphocytic leukaemia [Unknown]
  - Hallucination [Unknown]
  - Pyrexia [Recovered/Resolved]
  - Haematocrit decreased [Unknown]
  - Malignant neoplasm progression [Unknown]
  - Tremor [Unknown]
  - Neutrophil count decreased [Recovered/Resolved]
  - Acute lymphocytic leukaemia recurrent [Unknown]
  - White blood cell count decreased [Unknown]
  - Lymphocyte count decreased [Unknown]
  - Neurotoxicity [Recovered/Resolved]
  - Photophobia [Unknown]
  - Haemoglobin decreased [Unknown]
  - Platelet count decreased [Recovered/Resolved]
  - Headache [Unknown]
  - Treatment failure [Unknown]
